FAERS Safety Report 16185505 (Version 1)
Quarter: 2019Q2

REPORT INFORMATION
  Report Type: Spontaneous
  Country: US (occurrence: US)
  Receive Date: 20190308
  Receipt Date: 20190308
  Transmission Date: 20190711
  Serious: No
  Sender: FDA-Public Use
  Company Number: None

PATIENT
  Age: 93 Year
  Sex: Female
  Weight: 77.11 kg

DRUGS (1)
  1. XELJANZ [Suspect]
     Active Substance: TOFACITINIB CITRATE
     Indication: RHEUMATOID ARTHRITIS
     Dosage: ?          OTHER DOSE:ITAKE 1 TABLET BY M(;?
     Route: 048
     Dates: start: 201511

REACTIONS (2)
  - Lower limb fracture [None]
  - Urinary tract infection [None]

NARRATIVE: CASE EVENT DATE: 20190308
